FAERS Safety Report 9752734 (Version 1)
Quarter: 2013Q4

REPORT INFORMATION
  Report Type: Spontaneous
  Country: PT (occurrence: PT)
  Receive Date: 20131213
  Receipt Date: 20131213
  Transmission Date: 20140711
  Serious: Yes (Life-Threatening, Hospitalization)
  Sender: FDA-Public Use
  Company Number: PT-ROXANE LABORATORIES, INC.-2013-RO-01927RO

PATIENT
  Age: 66 Year
  Sex: Female

DRUGS (4)
  1. LITHIUM CARBONATE [Suspect]
     Indication: BIPOLAR DISORDER
  2. CYAMEMAZINE [Concomitant]
  3. RISPERIDONE [Concomitant]
  4. TOPIRAMATE [Concomitant]

REACTIONS (5)
  - Toxicity to various agents [Recovered/Resolved]
  - Renal failure acute [Recovered/Resolved]
  - Hypothyroidism [Recovered/Resolved]
  - Hyperparathyroidism [Recovered/Resolved]
  - Hypercalcaemia [Recovered/Resolved]
